FAERS Safety Report 5487274-3 (Version None)
Quarter: 2007Q4

REPORT INFORMATION
  Report Type: 
  Country: None (occurrence: None)
  Receive Date: 20071015
  Receipt Date: 20071001
  Transmission Date: 20080405
  Serious: Yes (Death, Hospitalization, Congenital Anomaly, Other)
  Sender: FDA-Public Use
  Company Number: 139846USA

PATIENT
  Sex: Female
  Weight: 1.134 kg

DRUGS (5)
  1. COPAXONE [Suspect]
     Indication: MULTIPLE SCLEROSIS
     Dosage: 20 MG, TRANSPLACENTAL
     Route: 064
     Dates: start: 20040527
  2. CITRACAL PRENATAL RX [Concomitant]
  3. DAILY VITE TABLETS [Concomitant]
  4. ABILIFY [Concomitant]
  5. OLANZAPINE [Concomitant]

REACTIONS (6)
  - BRONCHOPULMONARY DYSPLASIA [None]
  - CAESAREAN SECTION [None]
  - CARDIOPULMONARY FAILURE [None]
  - DRUG EXPOSURE DURING PREGNANCY [None]
  - PREMATURE BABY [None]
  - TALIPES [None]
